FAERS Safety Report 10394512 (Version 5)
Quarter: 2016Q2

REPORT INFORMATION
  Report Type: Spontaneous
  Country: US (occurrence: US)
  Receive Date: 20140819
  Receipt Date: 20160609
  Transmission Date: 20160815
  Serious: Yes (Other)
  Sender: FDA-Public Use
  Company Number: US-JNJFOC-20140615160

PATIENT
  Age: 23 Year
  Sex: Male
  Weight: 106.6 kg

DRUGS (1)
  1. BENGAY COLD THERAPY WITH PRO-COOL TECHNOLOGY [Suspect]
     Active Substance: MENTHOL
     Indication: PAIN
     Dosage: A SMALL AMOUNT
     Route: 061
     Dates: start: 20140614

REACTIONS (4)
  - Expired product administered [Unknown]
  - Pyrexia [Unknown]
  - Application site burn [Recovering/Resolving]
  - Burns third degree [Recovering/Resolving]

NARRATIVE: CASE EVENT DATE: 20140614
